FAERS Safety Report 9170217 (Version 5)
Quarter: 2013Q3

REPORT INFORMATION
  Report Type: Spontaneous
  Country: GB (occurrence: GB)
  Receive Date: 20130319
  Receipt Date: 20130902
  Transmission Date: 20140515
  Serious: Yes (Death)
  Sender: FDA-Public Use
  Company Number: PHFR2013GB001735

PATIENT
  Age: 53 Year
  Sex: Male
  Weight: 70 kg

DRUGS (11)
  1. CLOZARIL [Suspect]
     Indication: SCHIZOPHRENIA
     Dosage: UNK
     Route: 048
     Dates: start: 20111201
  2. LEVODOPA BENSERAZIDE [Concomitant]
     Indication: PARKINSONISM
     Dosage: UNK (12.5/50 QDS)
  3. LEVODOPA BENSERAZIDE [Concomitant]
     Dosage: UNK (25/100) FOR 7 DAYS
  4. ENTACAPONE [Concomitant]
     Dosage: 200 MG, FPR 7 DAYS
     Route: 048
  5. SERTRALINE [Concomitant]
     Indication: DEPRESSION
     Dosage: 100 MG, QD
     Route: 048
  6. CARBOCISTEINE [Concomitant]
     Dosage: 750 MG, UNK
     Route: 048
     Dates: start: 20130218
  7. FERROUS FUMARATE [Concomitant]
     Indication: IRON DEFICIENCY
     Dosage: 20 MG, BID
     Route: 048
  8. CLENIL MODULITE [Concomitant]
     Indication: ASTHMA
  9. SENNA [Concomitant]
     Indication: CONSTIPATION
     Dosage: 15 MG, UNK
     Route: 048
  10. HYOSCINE [Concomitant]
     Indication: CONSTIPATION
     Dosage: UNK UKN, UNK
     Dates: start: 20130218
  11. PARACETAMOL [Concomitant]
     Dosage: UNK UKN, QD
     Route: 048

REACTIONS (2)
  - Myocardial infarction [Fatal]
  - Platelet count decreased [Unknown]
